FAERS Safety Report 25907916 (Version 1)
Quarter: 2025Q4

REPORT INFORMATION
  Report Type: Spontaneous
  Country: US (occurrence: US)
  Receive Date: 20251010
  Receipt Date: 20251010
  Transmission Date: 20260118
  Serious: No
  Sender: PFIZER
  Company Number: US-PFIZER INC-202500200784

PATIENT
  Age: 64 Year
  Sex: Female
  Weight: 96.16 kg

DRUGS (1)
  1. PANTOPRAZOLE [Suspect]
     Active Substance: PANTOPRAZOLE
     Indication: Gastrooesophageal reflux disease
     Dosage: 40MG, ONE TABLET BY MOUTH ONCE A DAY, 30 MINUTES TO 1 HOUR BEFORE BREAKFAST
     Route: 048
     Dates: start: 2025

REACTIONS (2)
  - Nasopharyngitis [Not Recovered/Not Resolved]
  - Influenza [Not Recovered/Not Resolved]
